FAERS Safety Report 9779536 (Version 2)
Quarter: 2014Q1

REPORT INFORMATION
  Report Type: Spontaneous
  Country: US (occurrence: US)
  Receive Date: 20131223
  Receipt Date: 20140204
  Transmission Date: 20141002
  Serious: No
  Sender: FDA-Public Use
  Company Number: US-PFIZER INC-2013364259

PATIENT
  Age: 30 Year
  Sex: Female

DRUGS (2)
  1. LYRICA [Suspect]
     Dosage: 75 MG, UNK
     Dates: start: 2013
  2. LYRICA [Suspect]
     Dosage: 25 MG, UNK

REACTIONS (3)
  - Drug intolerance [Unknown]
  - Weight increased [Unknown]
  - Drug ineffective [Unknown]
